FAERS Safety Report 7938951-3 (Version None)
Quarter: 2011Q4

REPORT INFORMATION
  Report Type: 
  Country: None (occurrence: None)
  Receive Date: 20111124
  Receipt Date: 20111118
  Transmission Date: 20120403
  Serious: Yes (Other)
  Sender: FDA-Public Use
  Company Number: US-PFIZER INC-2011263180

PATIENT
  Sex: Male
  Weight: 83.9 kg

DRUGS (1)
  1. NEURONTIN [Suspect]
     Indication: FIBROMYALGIA
     Dosage: UNK
     Route: 048
     Dates: start: 20110901, end: 20111001

REACTIONS (1)
  - OEDEMA PERIPHERAL [None]
